FAERS Safety Report 7333219-0 (Version None)
Quarter: 2011Q1

REPORT INFORMATION
  Report Type: 
  Country: None (occurrence: None)
  Receive Date: 20110224
  Receipt Date: 20110208
  Transmission Date: 20110831
  Serious: Yes (Hospitalization)
  Sender: FDA-Public Use
  Company Number: DSA_44968_2011

PATIENT
  Age: 10 Month
  Sex: Male

DRUGS (2)
  1. LASIX [Suspect]
     Indication: CONGENITAL MYOPATHY
     Dosage: 7 MG, QD, ORAL
     Route: 048
     Dates: start: 20100901, end: 20101222
  2. ENALAPRIL MALEATE [Suspect]
     Indication: CONGENITAL MYOPATHY
     Dosage: 2.5 MG BID, ORAL
     Route: 048
     Dates: start: 20100901, end: 20101222

REACTIONS (10)
  - BLOOD CREATININE INCREASED [None]
  - ACCIDENTAL OVERDOSE [None]
  - BLOOD UREA INCREASED [None]
  - RENAL FAILURE ACUTE [None]
  - ALANINE AMINOTRANSFERASE INCREASED [None]
  - BLOOD SODIUM DECREASED [None]
  - BLOOD POTASSIUM INCREASED [None]
  - HYPOTENSION [None]
  - HAEMOGLOBIN DECREASED [None]
  - MEAN CELL VOLUME DECREASED [None]
